FAERS Safety Report 10219127 (Version 1)
Quarter: 2014Q2

REPORT INFORMATION
  Report Type: Spontaneous
  Country: KR (occurrence: KR)
  Receive Date: 20140605
  Receipt Date: 20140605
  Transmission Date: 20141212
  Serious: Yes (Death)
  Sender: FDA-Public Use
  Company Number: KR-INCYTE CORPORATION-2014IN001492

PATIENT
  Sex: Female

DRUGS (1)
  1. JAKAVI [Suspect]
     Indication: MYELOFIBROSIS
     Dosage: UNK UNK, UNK
     Route: 048
     Dates: start: 201312

REACTIONS (1)
  - Death [Fatal]
